FAERS Safety Report 6360667-8 (Version None)
Quarter: 2009Q3

REPORT INFORMATION
  Report Type: 
  Country: None (occurrence: None)
  Receive Date: 20090918
  Receipt Date: 20090909
  Transmission Date: 20100115
  Serious: Yes (Death, Hospitalization, Other)
  Sender: FDA-Public Use
  Company Number: US-BIOGENIDEC-2009BI026570

PATIENT
  Age: 52 Year
  Sex: Female

DRUGS (1)
  1. TYSABRI [Suspect]
     Indication: MULTIPLE SCLEROSIS
     Route: 042
     Dates: start: 20080918, end: 20090101

REACTIONS (3)
  - DRUG SPECIFIC ANTIBODY PRESENT [None]
  - MULTIPLE SCLEROSIS [None]
  - PULMONARY EMBOLISM [None]
